FAERS Safety Report 9240359 (Version 1)
Quarter: 2013Q2

REPORT INFORMATION
  Report Type: Spontaneous
  Country: US (occurrence: US)
  Receive Date: 20130418
  Receipt Date: 20130418
  Transmission Date: 20140414
  Serious: Yes (Other)
  Sender: FDA-Public Use
  Company Number: US-SANOFI-AVENTIS-2013SA039922

PATIENT
  Sex: 0

DRUGS (1)
  1. TAXOTERE [Suspect]

REACTIONS (1)
  - Burns second degree [Unknown]
